FAERS Safety Report 18617221 (Version 2)
Quarter: 2021Q1

REPORT INFORMATION
  Report Type: Spontaneous
  Country: US (occurrence: US)
  Receive Date: 20201215
  Receipt Date: 20210215
  Transmission Date: 20210419
  Serious: No
  Sender: FDA-Public Use
  Company Number: US-CELLTRION INC.-2020US030525

PATIENT

DRUGS (3)
  1. TRUXIMA [Suspect]
     Active Substance: RITUXIMAB-ABBS
     Dosage: 1000 MG EVERY 6 MONTHS
     Route: 042
     Dates: start: 20200526
  2. TRUXIMA [Suspect]
     Active Substance: RITUXIMAB-ABBS
     Dosage: 1000 MILLIGRAM
     Route: 042
     Dates: start: 20201204
  3. TRUXIMA [Suspect]
     Active Substance: RITUXIMAB-ABBS
     Indication: POLYMYOSITIS
     Dosage: 1000 MG EVERY 6 MONTHS
     Route: 042
     Dates: start: 20200512

REACTIONS (1)
  - Off label use [Unknown]

NARRATIVE: CASE EVENT DATE: 20201029
